FAERS Safety Report 7934424-2 (Version None)
Quarter: 2011Q4

REPORT INFORMATION
  Report Type: 
  Country: None (occurrence: None)
  Receive Date: 20111122
  Receipt Date: 20111117
  Transmission Date: 20120403
  Serious: Yes (Death)
  Sender: FDA-Public Use
  Company Number: US-GLAXOSMITHKLINE-A0953747A

PATIENT
  Sex: Female

DRUGS (1)
  1. ARIXTRA [Suspect]
     Dosage: 7.5MG UNKNOWN
     Route: 058

REACTIONS (1)
  - DEATH [None]
